FAERS Safety Report 11790998 (Version 1)
Quarter: 2015Q4

REPORT INFORMATION
  Report Type: Spontaneous
  Country: US (occurrence: US)
  Receive Date: 20151201
  Receipt Date: 20151201
  Transmission Date: 20160305
  Serious: No
  Sender: FDA-Public Use
  Company Number: US-SA-2015SA031488

PATIENT
  Age: 55 Year
  Sex: Female

DRUGS (2)
  1. RENVELA [Suspect]
     Active Substance: SEVELAMER CARBONATE
     Route: 048
     Dates: start: 20150523
  2. RENVELA [Suspect]
     Active Substance: SEVELAMER CARBONATE
     Dosage: DOSE:  RENVELA TAB 800 MG 2 TABLET WITH MEALS + 1 TABLET WITH SNACKS
     Route: 048

REACTIONS (1)
  - Constipation [Not Recovered/Not Resolved]
